FAERS Safety Report 26117106 (Version 1)
Quarter: 2025Q4

REPORT INFORMATION
  Report Type: Spontaneous
  Country: US (occurrence: US)
  Receive Date: 20251203
  Receipt Date: 20251203
  Transmission Date: 20260117
  Serious: No
  Sender: MERCK SHARP & DOHME LLC
  Company Number: US-009507513-2356217

PATIENT
  Sex: Female

DRUGS (21)
  1. WINREVAIR [Suspect]
     Active Substance: SOTATERCEPT-CSRK
  2. WINREVAIR [Suspect]
     Active Substance: SOTATERCEPT-CSRK
  3. WINREVAIR [Suspect]
     Active Substance: SOTATERCEPT-CSRK
  4. WINREVAIR [Suspect]
     Active Substance: SOTATERCEPT-CSRK
  5. TREPROSTINIL [Suspect]
     Active Substance: TREPROSTINIL
     Indication: Pulmonary arterial hypertension
     Dosage: DOSAGE: 30.4 NG/KG STRENGTH 5 MG/ML - 30.4 NG/KG/MIN
     Route: 058
  6. VALACYCLOVIR [Concomitant]
     Active Substance: VALACYCLOVIR HYDROCHLORIDE
  7. SILDENAFIL [Concomitant]
     Active Substance: SILDENAFIL
  8. LIOTHYRONINE SODIUM [Concomitant]
     Active Substance: LIOTHYRONINE SODIUM
  9. RITUXAN [Concomitant]
     Active Substance: RITUXIMAB
  10. ESTRIOL MICRONIZED [Concomitant]
  11. OPSUMIT [Concomitant]
     Active Substance: MACITENTAN
  12. PREGABALIN [Concomitant]
     Active Substance: PREGABALIN
  13. URSODIOL [Concomitant]
     Active Substance: URSODIOL
  14. IRON [Concomitant]
     Active Substance: IRON
  15. OXYGEN [Concomitant]
     Active Substance: OXYGEN
  16. D3-2000 [Concomitant]
  17. SPIRONOLACTONE [Concomitant]
     Active Substance: SPIRONOLACTONE
  18. PROGESTERONE [Concomitant]
     Active Substance: PROGESTERONE
  19. FUROSEMIDE [Concomitant]
     Active Substance: FUROSEMIDE
  20. FERROUS SULFATE [Concomitant]
     Active Substance: FERROUS SULFATE
  21. POTASSIUM CHLORIDE [Concomitant]
     Active Substance: POTASSIUM CHLORIDE

REACTIONS (1)
  - Laboratory test abnormal [Unknown]
